FAERS Safety Report 17428257 (Version 1)
Quarter: 2020Q1

REPORT INFORMATION
  Report Type: Report from Study
  Country: AU (occurrence: AU)
  Receive Date: 20200217
  Receipt Date: 20200217
  Transmission Date: 20200409
  Serious: Yes (Hospitalization, Other)
  Sender: FDA-Public Use
  Company Number: AU-BRISTOL-MYERS SQUIBB COMPANY-BMS-2020-011739

PATIENT
  Age: 87 Year
  Sex: Female

DRUGS (1)
  1. NIVOLUMAB [Suspect]
     Active Substance: NIVOLUMAB
     Indication: MALIGNANT MELANOMA
     Dosage: 240 MILLIGRAM, ,FORTNIGHTLY
     Route: 065

REACTIONS (3)
  - Arthritis infective [Unknown]
  - Fall [Unknown]
  - Asthenia [Unknown]

NARRATIVE: CASE EVENT DATE: 20191221
